FAERS Safety Report 4677188-0 (Version None)
Quarter: 2005Q2

REPORT INFORMATION
  Report Type: 
  Country: None (occurrence: None)
  Receive Date: 20050531
  Receipt Date: 20050518
  Transmission Date: 20051028
  Serious: Yes (Death, Hospitalization)
  Sender: FDA-Public Use
  Company Number: US-JNJFOC-20050501448

PATIENT
  Sex: Male

DRUGS (21)
  1. BLINDED; ABCIXIMA [Suspect]
     Route: 042
  2. BLINDED; ABCIXIMA [Suspect]
     Route: 042
  3. PLACEBO [Suspect]
     Route: 042
  4. PLACEBO [Suspect]
     Route: 042
  5. ASPIRIN [Concomitant]
     Route: 049
  6. SYNTHROID [Concomitant]
     Route: 049
  7. ATENOLOL [Concomitant]
     Route: 049
  8. CARDURA [Concomitant]
     Route: 049
  9. TRIAMTERENE [Concomitant]
     Route: 049
  10. HYDROCHLOROTHIAZIDE [Concomitant]
     Route: 049
  11. CLARITIN-D [Concomitant]
     Route: 049
  12. GLUCOSAMINE [Concomitant]
  13. CHONDROITIN [Concomitant]
  14. OCUVITE [Concomitant]
     Route: 047
  15. OCUVITE [Concomitant]
     Route: 047
  16. OCUVITE [Concomitant]
     Route: 047
  17. ACIPHEX [Concomitant]
     Route: 049
  18. FOLATE [Concomitant]
     Route: 049
  19. COUMADIN [Concomitant]
     Route: 049
  20. MOXIFLOXACIN HCL [Concomitant]
     Route: 049
  21. LISINOPRIL [Concomitant]
     Route: 049

REACTIONS (2)
  - CARDIAC ARREST [None]
  - NEUROLOGICAL SYMPTOM [None]
